FAERS Safety Report 25088539 (Version 1)
Quarter: 2025Q1

REPORT INFORMATION
  Report Type: Spontaneous
  Country: US (occurrence: None)
  Receive Date: 20250317
  Receipt Date: 20250317
  Transmission Date: 20250409
  Serious: No
  Sender: FDA-CTU
  Company Number: None

PATIENT
  Sex: Female

DRUGS (2)
  1. MYCOPHENOLATE MOFETIL [Suspect]
     Active Substance: MYCOPHENOLATE MOFETIL
     Indication: Arteritis
     Dosage: 1000MG TWICE DILY ORAL ?
     Route: 048
     Dates: start: 202304
  2. MYCOPHENOLATE MOFETIL [Suspect]
     Active Substance: MYCOPHENOLATE MOFETIL
     Indication: Encephalopathy

REACTIONS (5)
  - Cognitive disorder [None]
  - Confusional state [None]
  - Gait disturbance [None]
  - Dementia [None]
  - Dementia Alzheimer^s type [None]
